FAERS Safety Report 16160693 (Version 2)
Quarter: 2019Q2

REPORT INFORMATION
  Report Type: Spontaneous
  Country: JP (occurrence: JP)
  Receive Date: 20190405
  Receipt Date: 20190417
  Transmission Date: 20190711
  Serious: Yes (Death, Other)
  Sender: FDA-Public Use
  Company Number: JP-ROCHE-2277438

PATIENT
  Age: 81 Year
  Sex: Female

DRUGS (22)
  1. RINDERON [BETAMETHASONE] [Concomitant]
     Active Substance: BETAMETHASONE
     Route: 041
     Dates: start: 20160725, end: 20160725
  2. MINOFIT [Concomitant]
     Active Substance: CYSTEINE\GLYCINE\GLYCYRRHIZIN
     Route: 041
     Dates: start: 20161201, end: 20161201
  3. GLUCOSE [Concomitant]
     Active Substance: DEXTROSE
     Route: 041
     Dates: start: 20160725, end: 20160725
  4. GLUCOSE [Concomitant]
     Active Substance: DEXTROSE
     Route: 041
     Dates: start: 20161201, end: 20161201
  5. POLARAMINE [Concomitant]
     Active Substance: DEXCHLORPHENIRAMINE MALEATE
     Route: 048
     Dates: start: 20160725, end: 20160725
  6. REBAMIPIDE [Concomitant]
     Active Substance: REBAMIPIDE
     Indication: PEPTIC ULCER
     Route: 048
     Dates: start: 200406
  7. PREDONINE [Concomitant]
     Active Substance: PREDNISOLONE
     Indication: MICROSCOPIC POLYANGIITIS
     Route: 048
     Dates: start: 200406
  8. NEXIUM [Concomitant]
     Active Substance: ESOMEPRAZOLE MAGNESIUM
     Indication: PEPTIC ULCER
     Route: 048
  9. RINDERON [BETAMETHASONE] [Concomitant]
     Active Substance: BETAMETHASONE
     Route: 041
     Dates: start: 20161201, end: 20161201
  10. FEBURIC [Concomitant]
     Active Substance: FEBUXOSTAT
     Indication: HYPERURICAEMIA
     Route: 048
     Dates: start: 201607
  11. CALONAL [Concomitant]
     Active Substance: ACETAMINOPHEN
     Route: 048
     Dates: start: 20161201, end: 20161201
  12. BREDININ [Concomitant]
     Active Substance: MIZORIBINE
     Indication: MICROSCOPIC POLYANGIITIS
     Route: 048
     Dates: start: 200406
  13. CILNIDIPINE [Concomitant]
     Active Substance: CILNIDIPINE
     Indication: HYPERTENSION
     Route: 048
     Dates: start: 200406
  14. LYRICA [Concomitant]
     Active Substance: PREGABALIN
     Indication: MYELOPATHY
     Route: 048
  15. RITUXAN [Suspect]
     Active Substance: RITUXIMAB
     Indication: MICROSCOPIC POLYANGIITIS
     Route: 041
     Dates: start: 20160725, end: 20160725
  16. CALONAL [Concomitant]
     Active Substance: ACETAMINOPHEN
     Route: 048
     Dates: start: 20160725, end: 20160725
  17. ATORVASTATIN [Concomitant]
     Active Substance: ATORVASTATIN
     Indication: HYPERLIPIDAEMIA
     Route: 048
     Dates: start: 200406
  18. ETHYL ICOSAPENTATE [Concomitant]
     Active Substance: ICOSAPENT ETHYL
     Indication: HYPERLIPIDAEMIA
     Route: 048
     Dates: start: 200406
  19. RITUXAN [Suspect]
     Active Substance: RITUXIMAB
     Route: 041
     Dates: start: 20161201, end: 20161201
  20. MINOFIT [Concomitant]
     Active Substance: CYSTEINE\GLYCINE\GLYCYRRHIZIN
     Route: 041
     Dates: start: 20160725, end: 20160725
  21. OLMETEC [Concomitant]
     Active Substance: OLMESARTAN MEDOXOMIL
     Indication: HYPERTENSION
     Route: 048
     Dates: start: 200406
  22. POLARAMINE [Concomitant]
     Active Substance: DEXCHLORPHENIRAMINE MALEATE
     Route: 048
     Dates: start: 20161201, end: 20161201

REACTIONS (3)
  - Interstitial lung disease [Fatal]
  - Rectal ulcer haemorrhage [Recovering/Resolving]
  - Cytomegalovirus enterocolitis [Recovering/Resolving]

NARRATIVE: CASE EVENT DATE: 20170111
